FAERS Safety Report 9688595 (Version 1)
Quarter: 2013Q4

REPORT INFORMATION
  Report Type: Spontaneous
  Country: US (occurrence: US)
  Receive Date: 20131114
  Receipt Date: 20131114
  Transmission Date: 20140711
  Serious: No
  Sender: FDA-Public Use
  Company Number: US-PFIZER INC-2013325211

PATIENT
  Sex: Female

DRUGS (3)
  1. LYRICA [Suspect]
     Dosage: UNK
  2. ARTERENOL [Suspect]
     Dosage: UNK
  3. LIRAGLUTIDE (NN2211) [Suspect]
     Dosage: UNK
     Dates: end: 20020131

REACTIONS (3)
  - Pruritus generalised [Unknown]
  - Vision blurred [Unknown]
  - Eye irritation [Unknown]
